FAERS Safety Report 6322142-6 (Version None)
Quarter: 2009Q3

REPORT INFORMATION
  Report Type: 
  Country: None (occurrence: None)
  Receive Date: 20090821
  Receipt Date: 20090821
  Transmission Date: 20100115
  Serious: No
  Sender: FDA-Public Use
  Company Number: None

PATIENT
  Age: 9 Month
  Sex: Male

DRUGS (2)
  1. CYCLOSPORINE [Suspect]
     Dosage: APPROXIMATELY 8.5 MONTHS
  2. AZATHIOPRINE [Concomitant]

REACTIONS (4)
  - DERMAL CYST [None]
  - RASH PAPULAR [None]
  - RASH PUSTULAR [None]
  - TREATMENT FAILURE [None]
